FAERS Safety Report 21562400 (Version 2)
Quarter: 2022Q4

REPORT INFORMATION
  Report Type: Spontaneous
  Country: AR (occurrence: AR)
  Receive Date: 20221107
  Receipt Date: 20221129
  Transmission Date: 20230113
  Serious: Yes (Hospitalization)
  Sender: FDA-Public Use
  Company Number: AR-PFIZER INC-PV202200094675

PATIENT
  Age: 16 Year
  Sex: Female

DRUGS (1)
  1. GENOTROPIN [Suspect]
     Active Substance: SOMATROPIN
     Indication: Turner^s syndrome
     Dosage: 1.5 TO  2 MG, 6 TIMES PER WEEK
     Dates: start: 20160413, end: 20220601

REACTIONS (2)
  - Bronchitis [Unknown]
  - Asthma [Unknown]

NARRATIVE: CASE EVENT DATE: 20221001
